FAERS Safety Report 4429571-6 (Version None)
Quarter: 2004Q3

REPORT INFORMATION
  Report Type: 
  Country: None (occurrence: None)
  Receive Date: 20040816
  Receipt Date: 20040806
  Transmission Date: 20050211
  Serious: Yes (Life-Threatening, Hospitalization, Other)
  Sender: FDA-Public Use
  Company Number: DEU-2004-0000932

PATIENT
  Sex: Male
  Weight: 110 kg

DRUGS (1)
  1. OXYCODONE HCL [Suspect]
     Indication: ARTHRALGIA
     Dosage: 500 MG, DAILY, INTRAVENOUS
     Route: 042
     Dates: start: 19990101, end: 20040101

REACTIONS (6)
  - ABSCESS [None]
  - DRUG DEPENDENCE [None]
  - DRUG WITHDRAWAL SYNDROME [None]
  - MEDICATION ERROR [None]
  - SEPSIS [None]
  - WEIGHT INCREASED [None]
